FAERS Safety Report 4464728-X (Version None)
Quarter: 2004Q3

REPORT INFORMATION
  Report Type: 
  Country: None (occurrence: None)
  Receive Date: 20040929
  Receipt Date: 20040929
  Transmission Date: 20050211
  Serious: Yes (Hospitalization)
  Sender: FDA-Public Use
  Company Number: None

PATIENT
  Sex: Male

DRUGS (16)
  1. TEMAZEPAM [Suspect]
     Indication: SLEEP DISORDER
     Dosage: 30 MG HS ORAL
     Route: 048
  2. APAP TAB [Concomitant]
  3. ALPRAZOLAM [Concomitant]
  4. COMBIVENT [Concomitant]
  5. DIGOXIN [Concomitant]
  6. DOCUSATE [Concomitant]
  7. FUROSEMIDE [Concomitant]
  8. GLYBURIDE [Concomitant]
  9. ISOSORBIDE DINITRATE [Concomitant]
  10. LISINOPRIL [Concomitant]
  11. MG CITRATE [Concomitant]
  12. PRAZOSIN HCL [Concomitant]
  13. RANITIDINE [Concomitant]
  14. SALSALATE [Concomitant]
  15. SIMVASTATIN [Concomitant]
  16. WARFARIN SODIUM [Concomitant]

REACTIONS (3)
  - CONFUSIONAL STATE [None]
  - LETHARGY [None]
  - MEDICATION ERROR [None]
